FAERS Safety Report 11149005 (Version 2)
Quarter: 2015Q2

REPORT INFORMATION
  Report Type: Spontaneous
  Country: BR (occurrence: BR)
  Receive Date: 20150529
  Receipt Date: 20150605
  Transmission Date: 20150821
  Serious: Yes (Death, Other)
  Sender: FDA-Public Use
  Company Number: PHHY2015BR064742

PATIENT
  Age: 20 Year
  Sex: Female
  Weight: 45 kg

DRUGS (14)
  1. ITRACONAZOLE. [Suspect]
     Active Substance: ITRACONAZOLE
     Dosage: 200 MG, QD
     Route: 065
  2. ZIDOVUDINE. [Concomitant]
     Active Substance: ZIDOVUDINE
     Indication: HIV TEST POSITIVE
     Route: 065
  3. RIFAMPIN. [Concomitant]
     Active Substance: RIFAMPIN
     Indication: MENINGITIS TUBERCULOUS
     Route: 065
  4. DEXAMETASON [Concomitant]
     Active Substance: DEXAMETHASONE
     Indication: MENINGITIS TUBERCULOUS
     Dosage: 8 MG, TID
     Route: 042
  5. RITONAVIR. [Concomitant]
     Active Substance: RITONAVIR
     Indication: HIV TEST POSITIVE
     Route: 065
  6. ITRACONAZOLE. [Suspect]
     Active Substance: ITRACONAZOLE
     Indication: SPOROTRICHOSIS
     Dosage: 600 MG, QD
     Route: 065
  7. AMPHOTERICIN B DEOXYCHOLATE [Suspect]
     Active Substance: AMPHOTERICIN B
     Indication: SPOROTRICHOSIS
     Dosage: 1 MG/KG, QD
     Route: 065
  8. ETHAMBUTOL [Concomitant]
     Active Substance: ETHAMBUTOL HYDROCHLORIDE
     Indication: MENINGITIS TUBERCULOUS
     Route: 065
  9. POSACONAZOLE [Suspect]
     Active Substance: POSACONAZOLE
     Indication: SPOROTRICHOSIS
     Dosage: 800 MG, QD
     Route: 065
  10. LOPINAVIR [Concomitant]
     Active Substance: LOPINAVIR
     Indication: HIV TEST POSITIVE
     Route: 065
  11. ABACAVIR [Concomitant]
     Active Substance: ABACAVIR
     Indication: HIV TEST POSITIVE
     Route: 065
  12. ISONIAZID. [Concomitant]
     Active Substance: ISONIAZID
     Indication: MENINGITIS TUBERCULOUS
     Route: 065
  13. TERBINAFINE [Suspect]
     Active Substance: TERBINAFINE
     Indication: SPOROTRICHOSIS
     Dosage: 250 MG, QD
     Route: 065
  14. LAMIVUDINE. [Concomitant]
     Active Substance: LAMIVUDINE
     Indication: HIV TEST POSITIVE
     Route: 065

REACTIONS (2)
  - Sporotrichosis [Unknown]
  - Death [Fatal]
